FAERS Safety Report 5450120-8 (Version None)
Quarter: 2007Q3

REPORT INFORMATION
  Report Type: 
  Country: None (occurrence: None)
  Receive Date: 20070912
  Receipt Date: 20070905
  Transmission Date: 20080115
  Serious: Yes (Hospitalization)
  Sender: FDA-Public Use
  Company Number: A0678868A

PATIENT
  Age: 58 Year
  Sex: Female

DRUGS (5)
  1. PAXIL [Suspect]
     Indication: DEPRESSION
     Dosage: 30Z UNKNOWN
     Route: 048
     Dates: start: 20041001, end: 20070601
  2. FLONASE [Concomitant]
  3. NEXIUM [Concomitant]
  4. ADVAIR DISKUS 100/50 [Concomitant]
  5. NAPROXEN [Concomitant]

REACTIONS (5)
  - CELLULITIS [None]
  - HYPERTENSION [None]
  - INSOMNIA [None]
  - STAPHYLOCOCCAL INFECTION [None]
  - WEIGHT INCREASED [None]
